FAERS Safety Report 4628079-2 (Version None)
Quarter: 2005Q2

REPORT INFORMATION
  Report Type: 
  Country: None (occurrence: None)
  Receive Date: 20050401
  Receipt Date: 20050324
  Transmission Date: 20051028
  Serious: Yes (Hospitalization)
  Sender: FDA-Public Use
  Company Number: 210931

PATIENT
  Age: 64 Year
  Sex: Male

DRUGS (1)
  1. RAPTIVA [Suspect]
     Indication: PSORIASIS
     Dosage: 1 MG/KG, 1/WEEK, SUBCUTANEOUS
     Route: 058
     Dates: start: 20041029

REACTIONS (4)
  - CHOLESTASIS [None]
  - EXANTHEM [None]
  - ICHTHYOSIS ACQUIRED [None]
  - LEUKOCYTOSIS [None]
